FAERS Safety Report 6967900-X (Version None)
Quarter: 2010Q3

REPORT INFORMATION
  Report Type: 
  Country: None (occurrence: None)
  Receive Date: 20100907
  Receipt Date: 20100707
  Transmission Date: 20110219
  Serious: No
  Sender: FDA-Public Use
  Company Number: A0868946A

PATIENT
  Age: 88 Year
  Sex: Female

DRUGS (15)
  1. ROPINIROLE [Suspect]
     Indication: RESTLESS LEGS SYNDROME
     Dosage: 1MG PER DAY
     Route: 048
     Dates: start: 20050101
  2. IRON PILLS [Concomitant]
  3. LOPRESSOR [Concomitant]
  4. HYDRALAZINE [Concomitant]
  5. FUROSEMIDE [Concomitant]
  6. OMEPRAZOLE [Concomitant]
  7. ADVAIR DISKUS 100/50 [Concomitant]
  8. VESICARE [Concomitant]
  9. HYTRIN [Concomitant]
  10. CALTRATE [Concomitant]
  11. PROCRIT [Concomitant]
  12. NEPHRO-VITE [Concomitant]
  13. ASCORBIC ACID [Concomitant]
  14. NORVASC [Concomitant]
  15. LOMOTIL [Concomitant]

REACTIONS (1)
  - DRUG INEFFECTIVE [None]
